FAERS Safety Report 6448749-3 (Version None)
Quarter: 2009Q4

REPORT INFORMATION
  Report Type: 
  Country: None (occurrence: None)
  Receive Date: 20091120
  Receipt Date: 20090916
  Transmission Date: 20100525
  Serious: No
  Sender: FDA-Public Use
  Company Number: US-KINGPHARMUSA00001-K200901150

PATIENT

DRUGS (1)
  1. FLECTOR [Suspect]
     Dosage: UNK
     Route: 061

REACTIONS (3)
  - CRYSTALLURIA [None]
  - DYSURIA [None]
  - HAEMATURIA [None]
